FAERS Safety Report 13998692 (Version 1)
Quarter: 2017Q3

REPORT INFORMATION
  Report Type: Spontaneous
  Country: US (occurrence: None)
  Receive Date: 20170922
  Receipt Date: 20170922
  Transmission Date: 20171128
  Serious: No
  Sender: FDA-Public Use
  Company Number: None

PATIENT
  Age: 15 Year
  Sex: Male
  Weight: 76.3 kg

DRUGS (10)
  1. PHENERGAN [Concomitant]
     Active Substance: PROMETHAZINE HYDROCHLORIDE
  2. FLEXERIL [Concomitant]
     Active Substance: CYCLOBENZAPRINE HYDROCHLORIDE
  3. VINCRISTINE SULFATE. [Suspect]
     Active Substance: VINCRISTINE SULFATE
     Dates: end: 20150627
  4. MORPHINE [Concomitant]
     Active Substance: MORPHINE
  5. CYTARABINE. [Suspect]
     Active Substance: CYTARABINE
     Dates: end: 20150620
  6. HYDRALAZINE [Concomitant]
     Active Substance: HYDRALAZINE HYDROCHLORIDE
  7. CYCLOPHOSPHAMIDE. [Suspect]
     Active Substance: CYCLOPHOSPHAMIDE
     Dates: end: 20150627
  8. METHOTREXATE. [Suspect]
     Active Substance: METHOTREXATE
     Dates: end: 20150620
  9. PREDNISONE. [Suspect]
     Active Substance: PREDNISONE
     Dates: end: 20150529
  10. BENADRYL [Concomitant]
     Active Substance: DIPHENHYDRAMINE HYDROCHLORIDE

REACTIONS (12)
  - Aggression [None]
  - Unresponsive to stimuli [None]
  - Tremor [None]
  - Fall [None]
  - Arachnoid cyst [None]
  - Seizure [None]
  - Eye movement disorder [None]
  - Oxygen saturation decreased [None]
  - Posterior reversible encephalopathy syndrome [None]
  - Infantile back arching [None]
  - Hypopnoea [None]
  - Pruritus [None]

NARRATIVE: CASE EVENT DATE: 20150629
